FAERS Safety Report 5443354-X (Version None)
Quarter: 2007Q3

REPORT INFORMATION
  Report Type: 
  Country: None (occurrence: None)
  Receive Date: 20070905
  Receipt Date: 20070829
  Transmission Date: 20080115
  Serious: Yes (Other)
  Sender: FDA-Public Use
  Company Number: A0677359A

PATIENT
  Age: 43 Year
  Sex: Male

DRUGS (7)
  1. ARIXTRA [Suspect]
     Dosage: 7.5MG UNKNOWN
     Route: 058
     Dates: start: 20061001
  2. LISINOPRIL [Concomitant]
  3. ASPIRIN [Concomitant]
  4. PREDNISONE [Concomitant]
  5. PLAVIX [Concomitant]
  6. OXYCONTIN [Concomitant]
  7. BACTRIM [Concomitant]

REACTIONS (1)
  - DEEP VEIN THROMBOSIS [None]
